FAERS Safety Report 18874792 (Version 1)
Quarter: 2021Q1

REPORT INFORMATION
  Report Type: Spontaneous
  Country: US (occurrence: US)
  Receive Date: 20210210
  Receipt Date: 20210210
  Transmission Date: 20210420
  Serious: No
  Sender: FDA-Public Use
  Company Number: US-SA-2021SA040164

PATIENT
  Age: 59 Year
  Sex: Female

DRUGS (1)
  1. AUBAGIO [Suspect]
     Active Substance: TERIFLUNOMIDE
     Indication: MULTIPLE SCLEROSIS
     Route: 048
     Dates: start: 20200520

REACTIONS (5)
  - Neuralgia [Unknown]
  - Hypoaesthesia [Unknown]
  - Dizziness [Unknown]
  - Muscular weakness [Unknown]
  - Product dose omission issue [Unknown]
